FAERS Safety Report 9813293 (Version 1)
Quarter: 2014Q1

REPORT INFORMATION
  Report Type: Spontaneous
  Country: DK (occurrence: None)
  Receive Date: 20140109
  Receipt Date: 20140109
  Transmission Date: 20141002
  Serious: Yes (Other)
  Sender: FDA-Public Use
  Company Number: DK-2013-0657

PATIENT
  Sex: Female

DRUGS (8)
  1. VINORELBINE INN [Suspect]
     Indication: BREAST CANCER
     Route: 048
     Dates: start: 20121026
  2. ARIMIDEX (ANASTROZOLE) [Suspect]
     Indication: BREAST CANCER
  3. FASLODEX (FULVESTRANT) [Suspect]
     Indication: BREAST CANCER
     Route: 042
  4. HERCEPTIN [Suspect]
     Indication: BREAST CANCER
  5. OXALIPLATIN (OXALIPLATIN) [Suspect]
     Indication: BREAST CANCER
  6. TAXOL (PACLITAXEL) [Suspect]
     Indication: BREAST CANCER
  7. XELODA [Suspect]
     Indication: BREAST CANCER
  8. ZOLADEX [Suspect]
     Indication: BREAST CANCER

REACTIONS (2)
  - Cardiotoxicity [None]
  - Metastases to liver [None]
